FAERS Safety Report 8116710-9 (Version None)
Quarter: 2012Q1

REPORT INFORMATION
  Report Type: 
  Country: None (occurrence: None)
  Receive Date: 20120131
  Receipt Date: 20110117
  Transmission Date: 20120608
  Serious: Yes (Hospitalization)
  Sender: FDA-Public Use
  Company Number: 012298

PATIENT
  Age: 72 Year
  Sex: Male
  Weight: 61.6 kg

DRUGS (11)
  1. PROMAC (POLAPREZINC) [Concomitant]
  2. ALDACTONE [Suspect]
     Indication: OEDEMA DUE TO HEPATIC DISEASE
     Dosage: 50 MG MILLIGRAM(S), QD, ORAL
     Route: 048
     Dates: start: 20101023
  3. OMEPRAZOLE [Concomitant]
  4. AMINOLEBAN EN (ALANINE, AMINOACETIC ACID, ARGININE HYDROCHLORIDE, ISOL [Concomitant]
  5. LIVACT (ISOLEUCINE, LEUCINE, VALINE) [Concomitant]
  6. LASIX [Suspect]
     Indication: OEDEMA DUE TO HEPATIC DISEASE
     Dosage: 60 MG MILLIGRAM(S), BID, ORAL
     Route: 048
     Dates: start: 20101204
  7. CALORYL (LACTULOSE) [Concomitant]
  8. FERROUS CITRATE [Concomitant]
  9. LEVOFLOXACIN [Concomitant]
  10. URSO 250 [Concomitant]
  11. OPC-41061 (TOLVAPTAN) TABLET [Suspect]
     Indication: HEPATIC CIRRHOSIS
     Dosage: 7.5 MG DAILY DOSE, ORAL
     Route: 048
     Dates: start: 20101207, end: 20101209

REACTIONS (3)
  - HEPATIC ENCEPHALOPATHY [None]
  - HEPATIC FAILURE [None]
  - POLLAKIURIA [None]
